FAERS Safety Report 5366732-6 (Version None)
Quarter: 2007Q2

REPORT INFORMATION
  Report Type: 
  Country: None (occurrence: None)
  Receive Date: 20070622
  Receipt Date: 20060925
  Transmission Date: 20071010
  Serious: No
  Sender: FDA-Public Use
  Company Number: US-ASTRAZENECA-2006UW18651

PATIENT
  Age: 72 Year
  Sex: Female

DRUGS (1)
  1. RHINOCORT [Suspect]
     Indication: POSTNASAL DRIP
     Dosage: PER NOSTRIL
     Route: 045

REACTIONS (2)
  - BLOOD PRESSURE IMMEASURABLE [None]
  - NAUSEA [None]
